FAERS Safety Report 14953431 (Version 7)
Quarter: 2018Q4

REPORT INFORMATION
  Report Type: Spontaneous
  Country: DE (occurrence: DE)
  Receive Date: 20180530
  Receipt Date: 20181119
  Transmission Date: 20190204
  Serious: Yes (Death, Hospitalization, Other)
  Sender: FDA-Public Use
  Company Number: DE-JNJFOC-20180536311

PATIENT
  Age: 78 Year
  Sex: Female
  Weight: 69 kg

DRUGS (20)
  1. SANDIMMUN [Interacting]
     Active Substance: CYCLOSPORINE
     Indication: MYELODYSPLASTIC SYNDROME
     Dosage: 50 MG, UNK - MID 2009 DOSE REDUCTION LATER INTERRUPTED
     Route: 048
     Dates: start: 20081216, end: 20170123
  2. L-THYROXIN [Concomitant]
     Active Substance: LEVOTHYROXINE SODIUM
     Indication: HYPOTHYROIDISM
     Route: 048
     Dates: start: 201212
  3. METOHEXAL [Concomitant]
     Active Substance: METOPROLOL
     Indication: ARRHYTHMIA
     Route: 048
     Dates: start: 201404
  4. RIVANOL [Concomitant]
     Active Substance: ETHACRIDINE LACTATE
     Indication: CELLULITIS
     Route: 061
     Dates: start: 20170227
  5. METOHEXAL [Concomitant]
     Active Substance: METOPROLOL
     Indication: HYPERTENSION
     Route: 048
     Dates: start: 201404
  6. AROMASIN [Concomitant]
     Active Substance: EXEMESTANE
     Indication: HORMONE THERAPY
     Route: 065
  7. AMOXICILLIN. [Concomitant]
     Active Substance: AMOXICILLIN
     Indication: CELLULITIS
     Route: 065
     Dates: start: 20170227
  8. XARELTO [Suspect]
     Active Substance: RIVAROXABAN
     Indication: ATRIAL FIBRILLATION
     Route: 048
     Dates: start: 20170127, end: 201702
  9. XARELTO [Suspect]
     Active Substance: RIVAROXABAN
     Indication: ATRIAL FIBRILLATION
     Route: 048
     Dates: start: 201702, end: 20170307
  10. SANDIMMUN [Interacting]
     Active Substance: CYCLOSPORINE
     Indication: MYELODYSPLASTIC SYNDROME
     Dosage: 100 MG, EVRY SECOND DAY
     Route: 048
     Dates: start: 20170210
  11. LERCANIDIPINE [Concomitant]
     Active Substance: LERCANIDIPINE
     Indication: HYPERTENSION
     Route: 048
     Dates: start: 201609
  12. RIVANOL [Concomitant]
     Active Substance: ETHACRIDINE LACTATE
     Indication: LYMPHANGITIS
     Route: 061
     Dates: start: 20170227
  13. NAFTIDROFURYL OXALATE [Concomitant]
     Active Substance: NAFRONYL OXALATE
     Indication: LYMPHANGITIS
     Route: 065
     Dates: start: 2017
  14. XARELTO [Suspect]
     Active Substance: RIVAROXABAN
     Indication: ATRIAL FIBRILLATION
     Route: 048
     Dates: start: 20170102, end: 20170126
  15. SANDIMMUN [Interacting]
     Active Substance: CYCLOSPORINE
     Indication: MYELODYSPLASTIC SYNDROME
     Route: 048
     Dates: start: 20090903, end: 20170118
  16. APIXABAN [Concomitant]
     Active Substance: APIXABAN
     Indication: ATRIAL FIBRILLATION
     Route: 065
     Dates: start: 201612, end: 20170102
  17. ENALAPRIL MALEATE W/HYDROCHLOROTHIAZIDE [Concomitant]
     Active Substance: ENALAPRIL MALEATE\HYDROCHLOROTHIAZIDE
     Indication: HYPERTENSION
     Dosage: 20MG/12.5MG, QD
     Route: 048
     Dates: start: 200904
  18. TORASEMID [Concomitant]
     Active Substance: TORSEMIDE
     Indication: CARDIAC FAILURE
     Route: 048
     Dates: end: 2017
  19. AMOXICILLIN. [Concomitant]
     Active Substance: AMOXICILLIN
     Indication: LYMPHANGITIS
     Route: 065
     Dates: start: 20170227
  20. NAFTIDROFURYL OXALATE [Concomitant]
     Active Substance: NAFRONYL OXALATE
     Indication: CELLULITIS
     Route: 065
     Dates: start: 2017

REACTIONS (15)
  - Incorrect dosage administered [Recovered/Resolved]
  - Drug interaction [Fatal]
  - Dyspnoea [Fatal]
  - Blood uric acid increased [Fatal]
  - General physical health deterioration [Fatal]
  - Pyrexia [Fatal]
  - Thrombocytopenia [Fatal]
  - Post procedural haemorrhage [Unknown]
  - Wrong technique in product usage process [Recovered/Resolved]
  - Leukopenia [Fatal]
  - Renal injury [Recovered/Resolved]
  - Febrile infection [Fatal]
  - Blood urea increased [Fatal]
  - Blood creatinine increased [Fatal]
  - Bronchitis [Fatal]

NARRATIVE: CASE EVENT DATE: 20170112
